FAERS Safety Report 11055018 (Version 1)
Quarter: 2015Q2

REPORT INFORMATION
  Report Type: Spontaneous
  Country: US (occurrence: US)
  Receive Date: 20150422
  Receipt Date: 20150422
  Transmission Date: 20150821
  Serious: No
  Sender: FDA-Public Use
  Company Number: US-SA-2014SA075282

PATIENT
  Sex: Female

DRUGS (1)
  1. CLEXANE [Suspect]
     Active Substance: ENOXAPARIN SODIUM
     Indication: PRODUCT USED FOR UNKNOWN INDICATION
     Route: 065

REACTIONS (8)
  - Dermatitis [Unknown]
  - Injection site pain [Unknown]
  - Burning sensation [Unknown]
  - Unevaluable event [Unknown]
  - Haematoma [Unknown]
  - Injection site discolouration [Unknown]
  - Contusion [Unknown]
  - Injection site nodule [Unknown]
